FAERS Safety Report 8455657-5 (Version None)
Quarter: 2012Q2

REPORT INFORMATION
  Report Type: 
  Country: None (occurrence: None)
  Receive Date: 20120614
  Receipt Date: 20110701
  Transmission Date: 20120825
  Serious: No
  Sender: FDA-Public Use
  Company Number: FDB-2011-031

PATIENT
  Age: 20 Year
  Sex: Female

DRUGS (11)
  1. ZANTAC [Concomitant]
  2. ASOFEX [Concomitant]
  3. TECHNETIUM 99M SULFUR COLLOID SOLUTION/INJ [Suspect]
     Indication: DUODENOGASTRIC REFLUX
     Dosage: ORAL, 0.5MCI
     Route: 048
     Dates: start: 20110629
  4. TECHNETIUM 99M SULFUR COLLOID SOLUTION/INJ [Suspect]
     Indication: GASTRIC EMPTYING STUDY
     Dosage: ORAL, 0.5MCI
     Route: 048
     Dates: start: 20110629
  5. VICODIN [Concomitant]
  6. ZOFRAN [Concomitant]
  7. CHLORODIAZCHLORODIAZAPIXIDE-COLIUM [Concomitant]
  8. CELEXA [Concomitant]
  9. REGLAN [Concomitant]
  10. TRAMADOL HCL [Concomitant]
  11. NEXIUM [Concomitant]

REACTIONS (3)
  - RASH [None]
  - PRURITUS [None]
  - YELLOW SKIN [None]
